FAERS Safety Report 12762329 (Version 1)
Quarter: 2016Q3

REPORT INFORMATION
  Report Type: Spontaneous
  Country: US (occurrence: US)
  Receive Date: 20160915
  Receipt Date: 20160915
  Transmission Date: 20161109
  Serious: No
  Sender: FDA-Public Use
  Company Number: None

PATIENT
  Age: 60 Year
  Sex: Male

DRUGS (1)
  1. COTELLIC [Suspect]
     Active Substance: COBIMETINIB
     Indication: NEOPLASM MALIGNANT
     Dosage: COTELLIC 20MG/ML - 60MG - PO - DAILY THREE WEEKS ON
     Route: 048
     Dates: start: 20160613

REACTIONS (6)
  - Eye swelling [None]
  - Peripheral swelling [None]
  - Urticaria [None]
  - Dark circles under eyes [None]
  - Pruritus [None]
  - Pain in extremity [None]

NARRATIVE: CASE EVENT DATE: 20160815
